FAERS Safety Report 6934754-7 (Version None)
Quarter: 2010Q3

REPORT INFORMATION
  Report Type: 
  Country: None (occurrence: None)
  Receive Date: 20100820
  Receipt Date: 20100813
  Transmission Date: 20110219
  Serious: Yes (Other)
  Sender: FDA-Public Use
  Company Number: US-AMGEN-QUU419404

PATIENT
  Sex: Male
  Weight: 85.8 kg

DRUGS (15)
  1. NPLATE [Suspect]
     Indication: IDIOPATHIC THROMBOCYTOPENIC PURPURA
     Dates: start: 20080924
  2. ACTOS [Concomitant]
     Route: 048
  3. GLIMEPIRIDE [Concomitant]
     Route: 048
  4. JANUVIA [Concomitant]
     Route: 048
  5. VYTORIN [Concomitant]
  6. FLOMAX [Concomitant]
  7. SERTRALINE HYDROCHLORIDE [Concomitant]
     Route: 048
  8. COLACE [Concomitant]
  9. LISINOPRIL [Concomitant]
     Route: 048
  10. MS CONTIN [Concomitant]
     Route: 048
  11. BETHANECHOL [Concomitant]
  12. VICODIN [Concomitant]
  13. LANTUS [Concomitant]
  14. LORATADINE [Concomitant]
  15. PROMACTA [Concomitant]
     Route: 048
     Dates: start: 20091223, end: 20100304

REACTIONS (5)
  - PETECHIAE [None]
  - PLATELET COUNT DECREASED [None]
  - PNEUMONIA [None]
  - SKIN DISCOLOURATION [None]
  - THERAPEUTIC RESPONSE DECREASED [None]
